FAERS Safety Report 25052974 (Version 2)
Quarter: 2025Q2

REPORT INFORMATION
  Report Type: Spontaneous
  Country: US (occurrence: US)
  Receive Date: 20250307
  Receipt Date: 20250511
  Transmission Date: 20250716
  Serious: Yes (Hospitalization)
  Sender: SANOFI AVENTIS
  Company Number: US-SA-2025SA060319

PATIENT
  Age: 16 Year
  Sex: Male

DRUGS (24)
  1. REZUROCK [Suspect]
     Active Substance: BELUMOSUDIL
     Indication: Graft versus host disease
     Dosage: 200 MG, QD
     Route: 048
     Dates: start: 20241106
  2. ACYCLOVIR [Concomitant]
     Active Substance: ACYCLOVIR
  3. ACYCLOVIR [Concomitant]
     Active Substance: ACYCLOVIR
  4. AMPICILLIN [Concomitant]
     Active Substance: AMPICILLIN
  5. AMPICILLIN [Concomitant]
     Active Substance: AMPICILLIN
  6. CLARITIN [Concomitant]
     Active Substance: LORATADINE
  7. CLARITIN [Concomitant]
     Active Substance: LORATADINE
  8. VITAMIN D3 [Concomitant]
     Active Substance: CHOLECALCIFEROL
  9. VITAMIN D3 [Concomitant]
     Active Substance: CHOLECALCIFEROL
  10. CYCLOBENZAPRINE [Concomitant]
     Active Substance: CYCLOBENZAPRINE
  11. CYCLOBENZAPRINE [Concomitant]
     Active Substance: CYCLOBENZAPRINE
  12. DEXAMETHASONE [Concomitant]
     Active Substance: DEXAMETHASONE
  13. DIAZEPAM [Concomitant]
     Active Substance: DIAZEPAM
  14. FLUCONAZOLE [Concomitant]
     Active Substance: FLUCONAZOLE
  15. FLUOCINONIDE [Concomitant]
     Active Substance: FLUOCINONIDE
  16. FOLIC ACID [Concomitant]
     Active Substance: FOLIC ACID
  17. GABAPENTIN [Concomitant]
     Active Substance: GABAPENTIN
  18. HYDROMORPHONE [Concomitant]
     Active Substance: HYDROMORPHONE
  19. KETOCONAZOLE [Concomitant]
     Active Substance: KETOCONAZOLE
  20. MOMETASONE [Concomitant]
     Active Substance: MOMETASONE
  21. OMEPRAZOLE [Concomitant]
     Active Substance: OMEPRAZOLE
  22. OXYBUTYNIN [Concomitant]
     Active Substance: OXYBUTYNIN
  23. SODIUM BICARBONATE [Concomitant]
     Active Substance: SODIUM BICARBONATE
  24. TYLENOL [Concomitant]
     Active Substance: ACETAMINOPHEN

REACTIONS (3)
  - Cystitis [Recovering/Resolving]
  - Infection [Unknown]
  - Inappropriate schedule of product administration [Unknown]

NARRATIVE: CASE EVENT DATE: 20241106
